FAERS Safety Report 14132351 (Version 1)
Quarter: 2017Q4

REPORT INFORMATION
  Report Type: Report from Study
  Country: JP (occurrence: JP)
  Receive Date: 20171027
  Receipt Date: 20171027
  Transmission Date: 20180321
  Serious: Yes (Other)
  Sender: FDA-Public Use
  Company Number: JP-ROCHE-2013125

PATIENT

DRUGS (1)
  1. CAPECITABINE. [Suspect]
     Active Substance: CAPECITABINE
     Indication: NEOPLASM MALIGNANT
     Route: 048

REACTIONS (3)
  - Gastric ulcer haemorrhage [Recovered/Resolved]
  - Skin fissures [Recovered/Resolved]
  - Skin swelling [Recovered/Resolved]
